FAERS Safety Report 16818966 (Version 1)
Quarter: 2019Q3

REPORT INFORMATION
  Report Type: Spontaneous
  Country: IT (occurrence: IT)
  Receive Date: 20190917
  Receipt Date: 20190917
  Transmission Date: 20191005
  Serious: Yes (Other)
  Sender: FDA-Public Use
  Company Number: IT-MYLANLABS-2019M1086837

PATIENT
  Age: 55 Year
  Sex: Female
  Weight: 67 kg

DRUGS (2)
  1. PREDNISONE. [Suspect]
     Active Substance: PREDNISONE
     Indication: ACUTE SINUSITIS
     Dosage: 25 MILLIGRAM, QD
     Route: 048
     Dates: start: 20190410
  2. UNIDROX [Suspect]
     Active Substance: PRULIFLOXACIN
     Indication: ACUTE SINUSITIS
     Dosage: 600 MILLIGRAM, QD
     Route: 048
     Dates: start: 20190410

REACTIONS (1)
  - Joint dislocation [Unknown]

NARRATIVE: CASE EVENT DATE: 20190416
